FAERS Safety Report 12483506 (Version 5)
Quarter: 2016Q3

REPORT INFORMATION
  Report Type: Spontaneous
  Country: US (occurrence: US)
  Receive Date: 20160621
  Receipt Date: 20160721
  Transmission Date: 20161109
  Serious: Yes (Hospitalization)
  Sender: FDA-Public Use
  Company Number: US-HORIZON-RAV-0107-2016

PATIENT
  Age: 14 Year
  Sex: Male

DRUGS (3)
  1. LOVENOX [Concomitant]
     Active Substance: ENOXAPARIN SODIUM
  2. RAVICTI [Suspect]
     Active Substance: GLYCEROL PHENYLBUTYRATE
     Indication: PRODUCT USED FOR UNKNOWN INDICATION
     Dosage: 3.5 ML TID; INCREASED TO 5.5 ML TID
     Dates: start: 20151028
  3. SODIUM BENZOATE [Concomitant]
     Active Substance: SODIUM BENZOATE

REACTIONS (3)
  - Hyperammonaemic crisis [Recovered/Resolved]
  - Viral infection [Unknown]
  - Thrombosis [Unknown]

NARRATIVE: CASE EVENT DATE: 201606
